FAERS Safety Report 18037462 (Version 5)
Quarter: 2021Q4

REPORT INFORMATION
  Report Type: Spontaneous
  Country: ES (occurrence: ES)
  Receive Date: 20200717
  Receipt Date: 20211229
  Transmission Date: 20220303
  Serious: Yes (Hospitalization, Other)
  Sender: FDA-Public Use
  Company Number: None

PATIENT
  Age: 39 Year
  Sex: Male

DRUGS (7)
  1. PIPERACILLIN SODIUM\TAZOBACTAM SODIUM [Suspect]
     Active Substance: PIPERACILLIN SODIUM\TAZOBACTAM SODIUM
     Indication: Respiratory tract infection
     Dosage: 4 G, Q8H
     Route: 065
     Dates: start: 20200507, end: 20200526
  2. METAMIZOLE MAGNESIUM [Suspect]
     Active Substance: METAMIZOLE MAGNESIUM
     Indication: Gastrointestinal disorder
     Dosage: 2 G (AMPOULE)
     Route: 048
     Dates: start: 20200526, end: 20200527
  3. METAMIZOLE MAGNESIUM [Suspect]
     Active Substance: METAMIZOLE MAGNESIUM
     Indication: Pyrexia
  4. METAMIZOLE MAGNESIUM [Suspect]
     Active Substance: METAMIZOLE MAGNESIUM
     Indication: Abdominal pain
  5. KALYDECO [Suspect]
     Active Substance: IVACAFTOR
     Indication: Cystic fibrosis
     Dosage: HALF DOSE
     Route: 048
     Dates: start: 20200518, end: 20200518
  6. KALYDECO [Suspect]
     Active Substance: IVACAFTOR
     Dosage: 1 DF (WITH DINNER)
     Route: 048
     Dates: start: 20200518
  7. KALYDECO [Suspect]
     Active Substance: IVACAFTOR
     Dosage: 1 DF, 1 TABLET WITH DINNER
     Route: 048
     Dates: start: 20200519, end: 20200526

REACTIONS (10)
  - Generalised oedema [Recovered/Resolved]
  - Pneumonia [Recovered/Resolved]
  - Acute respiratory failure [Recovered/Resolved]
  - Hypotension [Recovered/Resolved]
  - Neutropenia [Recovered/Resolved]
  - Thrombocytopenia [Recovered/Resolved]
  - Lymphopenia [Recovered/Resolved]
  - Toxic epidermal necrolysis [Recovered/Resolved]
  - Blood bilirubin increased [Recovered/Resolved]
  - Hyperbilirubinaemia [Recovered/Resolved]

NARRATIVE: CASE EVENT DATE: 20200101
